FAERS Safety Report 12012846 (Version 1)
Quarter: 2016Q1

REPORT INFORMATION
  Report Type: Spontaneous
  Country: JP (occurrence: JP)
  Receive Date: 20160205
  Receipt Date: 20160205
  Transmission Date: 20160526
  Serious: Yes (Other)
  Sender: FDA-Public Use
  Company Number: JP-MALLINCKRODT-T201403718

PATIENT
  Age: 64 Year
  Sex: Male
  Weight: 50 kg

DRUGS (21)
  1. PANTOSIN [Concomitant]
     Active Substance: PANTETHINE
     Dosage: 1500 MG, UNK
     Route: 048
  2. ROCEPHIN [Concomitant]
     Active Substance: CEFTRIAXONE SODIUM
     Dosage: 2000 MG, UNK
     Route: 051
     Dates: start: 20140219, end: 20140223
  3. GLYCERIN W/FRUCTOSE [Concomitant]
     Dosage: 200 ML, UNK
     Route: 051
     Dates: start: 20140223, end: 20140228
  4. DECADRON [Concomitant]
     Active Substance: DEXAMETHASONE
     Dosage: 6.6 MG, UNK
     Route: 051
     Dates: start: 20140223, end: 20140228
  5. SELBEX [Concomitant]
     Active Substance: TEPRENONE
     Dosage: 150 MG, UNK
     Route: 048
  6. CHLORTRIMETON [Concomitant]
     Active Substance: CHLORPHENIRAMINE MALEATE
     Indication: NASAL SINUS CANCER
     Dosage: 10 MG, UNK
     Route: 051
     Dates: start: 20140226, end: 20140226
  7. METHADONE [Suspect]
     Active Substance: METHADONE HYDROCHLORIDE
     Indication: CANCER PAIN
     Dosage: 5 MG, (15 MG DAILY DOSE)
     Route: 048
     Dates: start: 20140204, end: 20140210
  8. METHADONE [Suspect]
     Active Substance: METHADONE HYDROCHLORIDE
     Dosage: 10 MG, (20 MG DAILY DOSE)
     Route: 048
     Dates: start: 20140211
  9. TRAVELMIN                          /00517301/ [Concomitant]
     Dosage: 3 DF, UNK
     Route: 048
     Dates: start: 20140204
  10. LYRICA [Concomitant]
     Active Substance: PREGABALIN
     Dosage: 150 MG, UNK
     Route: 048
     Dates: start: 20140204, end: 20140207
  11. OPSO [Concomitant]
     Active Substance: MORPHINE HYDROCHLORIDE
     Dosage: 10 MG, PRN
     Route: 048
     Dates: start: 20140203, end: 20140206
  12. MAGNESIUM OXIDE. [Concomitant]
     Active Substance: MAGNESIUM OXIDE
     Dosage: 1500 MG, UNK
     Route: 048
  13. GLYCERIN W/FRUCTOSE [Concomitant]
     Indication: NASAL SINUS CANCER
     Dosage: 200 ML, UNK
     Route: 051
     Dates: end: 20140207
  14. SILECE [Concomitant]
     Active Substance: FLUNITRAZEPAM
     Dosage: 2 MG, UNK
     Route: 051
     Dates: start: 20140206, end: 20140209
  15. SERENACE [Concomitant]
     Active Substance: HALOPERIDOL
     Dosage: 5 MG, UNK
     Route: 051
     Dates: start: 20140206, end: 20140209
  16. LOXONIN [Concomitant]
     Active Substance: LOXOPROFEN SODIUM
     Dosage: 180 MG, UNK
     Route: 048
  17. FERROMIA [Concomitant]
     Active Substance: FERROUS CITRATE
     Dosage: 100 MG, UNK
     Route: 048
  18. ERBITUX [Concomitant]
     Active Substance: CETUXIMAB
     Indication: NASAL SINUS CANCER
     Dosage: 375 MG, UNK
     Route: 051
     Dates: start: 20140226, end: 20140226
  19. NAUZELIN [Concomitant]
     Active Substance: DOMPERIDONE
     Dosage: 30 MG, UNK
     Route: 048
  20. DECADRON [Concomitant]
     Active Substance: DEXAMETHASONE
     Indication: NASAL SINUS CANCER
     Dosage: 6.6 MG, UNK
     Route: 051
     Dates: end: 20140207
  21. FENTOS [Concomitant]
     Active Substance: FENTANYL
     Dosage: 6 MG, UNK
     Route: 062
     Dates: end: 20140205

REACTIONS (4)
  - Dyspnoea [Unknown]
  - Cellulitis orbital [Recovering/Resolving]
  - Delirium [Recovering/Resolving]
  - Somnolence [Unknown]

NARRATIVE: CASE EVENT DATE: 20140206
